FAERS Safety Report 24815032 (Version 1)
Quarter: 2025Q1

REPORT INFORMATION
  Report Type: Spontaneous
  Country: CN (occurrence: CN)
  Receive Date: 20250107
  Receipt Date: 20250107
  Transmission Date: 20250409
  Serious: Yes (Hospitalization, Other)
  Sender: PFIZER
  Company Number: CN-PFIZER INC-PV202500000806

PATIENT
  Age: 29 Year
  Sex: Female
  Weight: 67 kg

DRUGS (1)
  1. VFEND [Suspect]
     Active Substance: VORICONAZOLE
     Indication: Systemic candida
     Dosage: 200 MG, 2X/DAY
     Route: 041
     Dates: start: 20241215, end: 20241218

REACTIONS (3)
  - Vision blurred [Recovering/Resolving]
  - Macular oedema [Recovering/Resolving]
  - Retinal oedema [Recovering/Resolving]

NARRATIVE: CASE EVENT DATE: 20241216
